FAERS Safety Report 10031768 (Version 1)
Quarter: 2014Q1

REPORT INFORMATION
  Report Type: Spontaneous
  Country: IN (occurrence: IN)
  Receive Date: 20140324
  Receipt Date: 20140324
  Transmission Date: 20141002
  Serious: Yes (Hospitalization)
  Sender: FDA-Public Use
  Company Number: IN-MYLANLABS-2014S1005681

PATIENT
  Age: 27 Year
  Sex: Male

DRUGS (1)
  1. AZATHIOPRINE [Suspect]
     Dosage: 100MG DAILY
     Route: 065

REACTIONS (1)
  - Aplasia pure red cell [Recovered/Resolved]
